FAERS Safety Report 24926429 (Version 6)
Quarter: 2025Q2

REPORT INFORMATION
  Report Type: Spontaneous
  Country: KR (occurrence: KR)
  Receive Date: 20250205
  Receipt Date: 20250528
  Transmission Date: 20250717
  Serious: Yes (Hospitalization)
  Sender: SAMSUNG BIOEPIS
  Company Number: KR-SAMSUNG BIOEPIS-SB-2025-04148

PATIENT
  Age: 67 Year
  Sex: Female
  Weight: 46.8 kg

DRUGS (36)
  1. TRASTUZUMAB [Suspect]
     Active Substance: TRASTUZUMAB
     Indication: Gallbladder cancer
     Route: 042
     Dates: start: 20241224, end: 20250127
  2. TRASTUZUMAB [Suspect]
     Active Substance: TRASTUZUMAB
     Route: 042
     Dates: start: 20250205
  3. TRASTUZUMAB [Suspect]
     Active Substance: TRASTUZUMAB
     Route: 042
     Dates: start: 20250325, end: 20250325
  4. NIVOLUMAB [Suspect]
     Active Substance: NIVOLUMAB
     Indication: Gallbladder cancer
     Route: 042
     Dates: start: 20241224, end: 20250127
  5. NIVOLUMAB [Suspect]
     Active Substance: NIVOLUMAB
     Route: 042
     Dates: start: 20250205
  6. NIVOLUMAB [Suspect]
     Active Substance: NIVOLUMAB
     Route: 042
     Dates: start: 20250325, end: 20250325
  7. GEMCITABINE [Suspect]
     Active Substance: GEMCITABINE
     Indication: Gallbladder cancer
     Route: 042
     Dates: start: 20241224, end: 20250127
  8. GEMCITABINE [Suspect]
     Active Substance: GEMCITABINE
     Route: 042
     Dates: start: 20250205
  9. GEMCITABINE [Suspect]
     Active Substance: GEMCITABINE
     Route: 042
     Dates: start: 20250325, end: 20250325
  10. CISPLATIN [Suspect]
     Active Substance: CISPLATIN
     Indication: Gallbladder cancer
     Route: 042
     Dates: start: 20241224, end: 20250127
  11. CISPLATIN [Suspect]
     Active Substance: CISPLATIN
     Route: 042
     Dates: start: 20250205
  12. CISPLATIN [Suspect]
     Active Substance: CISPLATIN
     Route: 042
     Dates: start: 20250325, end: 20250325
  13. URSODIOL [Concomitant]
     Active Substance: URSODIOL
     Indication: Prophylaxis
     Route: 048
     Dates: start: 20241204, end: 20241204
  14. URSODIOL [Concomitant]
     Active Substance: URSODIOL
     Route: 048
     Dates: start: 20241223
  15. DIETARY SUPPLEMENT\HERBALS\MILK THISTLE [Concomitant]
     Active Substance: MILK THISTLE
     Indication: Prophylaxis
     Dosage: LEGALON CAPSULE 140; 420 M;
     Route: 048
     Dates: start: 20241223
  16. PROPACETAMOL HYDROCHLORIDE [Concomitant]
     Active Substance: PROPACETAMOL HYDROCHLORIDE
     Indication: Prophylaxis
     Route: 042
     Dates: start: 20241224
  17. PROPACETAMOL HYDROCHLORIDE [Concomitant]
     Active Substance: PROPACETAMOL HYDROCHLORIDE
     Route: 042
     Dates: start: 20241203, end: 20241203
  18. Gasocol [Concomitant]
     Indication: Product used for unknown indication
     Dosage: SUSPENSION;
     Dates: start: 20250102, end: 20250102
  19. TYLENOL 8HR [Concomitant]
     Active Substance: ACETAMINOPHEN
     Indication: Prophylaxis
     Dates: start: 20250106, end: 20250108
  20. TYLENOL 8HR [Concomitant]
     Active Substance: ACETAMINOPHEN
     Dosage: 8 HOURS ER TABLET;
     Route: 048
     Dates: start: 20250109
  21. NALOXONE HYDROCHLORIDE\OXYCODONE HYDROCHLORIDE [Concomitant]
     Active Substance: NALOXONE HYDROCHLORIDE\OXYCODONE HYDROCHLORIDE
     Indication: Prophylaxis
     Dosage: PROLONGED RELEASE, 20/10 MG;
     Route: 048
     Dates: start: 20241226
  22. LEVOFLOXACIN [Concomitant]
     Active Substance: LEVOFLOXACIN
     Indication: Prophylaxis
     Route: 048
     Dates: start: 20250109, end: 20250120
  23. XANAX [Concomitant]
     Active Substance: ALPRAZOLAM
     Indication: Prophylaxis
     Route: 048
     Dates: start: 20250131
  24. FLUMAZENIL [Concomitant]
     Active Substance: FLUMAZENIL
     Indication: Product used for unknown indication
     Dosage: FORM STRENGTH: 0.5 MG/5 ML;
     Route: 042
     Dates: start: 20250102, end: 20250102
  25. CIPROFLOXACIN [Concomitant]
     Active Substance: CIPROFLOXACIN
     Indication: Prophylaxis
     Dosage: 400 MG/200 ML;
     Dates: end: 20250120
  26. CIPROFLOXACIN [Concomitant]
     Active Substance: CIPROFLOXACIN
     Dosage: 400 MG/200 ML; 400 M;
     Route: 042
     Dates: start: 20241226, end: 20241230
  27. CIPROFLOXACIN [Concomitant]
     Active Substance: CIPROFLOXACIN
     Dosage: 100 ML (BOTTLE) 400 MG;
     Route: 042
     Dates: start: 20241203, end: 20241203
  28. CIPROFLOXACIN [Concomitant]
     Active Substance: CIPROFLOXACIN
     Dosage: 400 MG/200 ML;
     Dates: start: 20241224, end: 20241230
  29. Godex [Concomitant]
     Indication: Prophylaxis
     Dosage: CAPSULE;
     Route: 048
     Dates: start: 20241223
  30. Peniramin [Concomitant]
     Indication: Prophylaxis
     Route: 042
     Dates: start: 20241206, end: 20241206
  31. Peniramin [Concomitant]
     Route: 042
     Dates: start: 20241224
  32. Dong A Gaster [Concomitant]
     Indication: Prophylaxis
     Dosage: PRN;
     Route: 042
     Dates: start: 20241206, end: 20241206
  33. Dong A Gaster [Concomitant]
     Route: 042
     Dates: start: 20241224
  34. Midacum [Concomitant]
     Indication: Product used for unknown indication
     Route: 042
     Dates: start: 20250102, end: 20250102
  35. Endonase [Concomitant]
     Indication: Product used for unknown indication
     Route: 048
     Dates: start: 20250102, end: 20250102
  36. Benocaine [Concomitant]
     Indication: Product used for unknown indication
     Dosage: 10 ML;
     Route: 048
     Dates: start: 20250102, end: 20250102

REACTIONS (4)
  - Jaundice [Recovering/Resolving]
  - Malignant neoplasm progression [Unknown]
  - Haematuria [Recovering/Resolving]
  - Off label use [Unknown]

NARRATIVE: CASE EVENT DATE: 20250127
